FAERS Safety Report 11715797 (Version 4)
Quarter: 2015Q4

REPORT INFORMATION
  Report Type: Report from Study
  Country: JP (occurrence: JP)
  Receive Date: 20151109
  Receipt Date: 20151229
  Transmission Date: 20160304
  Serious: Yes (Death, Hospitalization, Other)
  Sender: FDA-Public Use
  Company Number: JP-OTSUKA-2015_013499

PATIENT
  Age: 77 Year
  Sex: Male
  Weight: 52.7 kg

DRUGS (8)
  1. TOLVAPTAN [Suspect]
     Active Substance: TOLVAPTAN
     Indication: FLUID RETENTION
     Dosage: 7.5 MG, QD (EVERY MORNING)
     Route: 048
     Dates: start: 20150327, end: 20151015
  2. FUROSEMIDE. [Concomitant]
     Active Substance: FUROSEMIDE
     Indication: FLUID RETENTION
     Dosage: 40 MG, DAILY DOSE
     Route: 048
     Dates: start: 20150318, end: 20150411
  3. FUROSEMIDE. [Concomitant]
     Active Substance: FUROSEMIDE
     Indication: FLUID RETENTION
     Dosage: 200 MG, DAILY DOSE
     Route: 042
     Dates: start: 20150410, end: 20150427
  4. AMINOLEBAN EN POWDER [Concomitant]
     Active Substance: AMINO ACIDS
     Indication: PRODUCT USED FOR UNKNOWN INDICATION
     Dosage: 100 G, DAILY DOSE
     Route: 048
     Dates: start: 20150423, end: 20151015
  5. FEBURIC [Concomitant]
     Active Substance: FEBUXOSTAT
     Indication: PRODUCT USED FOR UNKNOWN INDICATION
     Dosage: 20 MG, DAILY DOSE
     Route: 048
     Dates: start: 20150325, end: 20151015
  6. ISOLEUCINE W/LEUCINE/VALINE [Concomitant]
     Active Substance: ISOLEUCINE\LEUCINE\VALINE
     Indication: PRODUCT USED FOR UNKNOWN INDICATION
     Dosage: 15 G, DAILY DOSE
     Route: 048
     Dates: start: 20150325, end: 20151015
  7. SPIRONOLACTONE. [Concomitant]
     Active Substance: SPIRONOLACTONE
     Indication: FLUID RETENTION
     Dosage: 25 MG, DAILY DOSE
     Route: 048
     Dates: start: 20150403, end: 20150411
  8. EXCELASE [Concomitant]
     Active Substance: PANCRELIPASE
     Indication: PRODUCT USED FOR UNKNOWN INDICATION
     Dosage: 6 DF, DAILY DOSE
     Route: 048
     Dates: start: 20150325, end: 20151015

REACTIONS (3)
  - Staphylococcal sepsis [Fatal]
  - Hyperammonaemia [Recovering/Resolving]
  - Hepatic failure [Fatal]

NARRATIVE: CASE EVENT DATE: 20150423
